FAERS Safety Report 20256047 (Version 8)
Quarter: 2023Q2

REPORT INFORMATION
  Report Type: Spontaneous
  Country: ES (occurrence: ES)
  Receive Date: 20211230
  Receipt Date: 20230519
  Transmission Date: 20230721
  Serious: Yes (Death, Hospitalization, Other)
  Sender: FDA-Public Use
  Company Number: ES-UCBSA-2021058019

PATIENT
  Age: 77 Year
  Sex: Male

DRUGS (13)
  1. PHENYTOIN [Suspect]
     Active Substance: PHENYTOIN
     Indication: Seizure prophylaxis
     Dosage: UNK
     Route: 065
  2. PHENYTOIN [Suspect]
     Active Substance: PHENYTOIN
     Indication: Partial seizures
  3. PHENYTOIN [Suspect]
     Active Substance: PHENYTOIN
     Indication: Epilepsy
  4. KEPPRA [Suspect]
     Active Substance: LEVETIRACETAM
     Indication: Epilepsy
     Dosage: UNK, (DOSE INCREASED)
     Route: 065
  5. KEPPRA [Suspect]
     Active Substance: LEVETIRACETAM
     Indication: Seizure prophylaxis
     Dosage: 750 MILLIGRAM, QD, (750 MG,1 IN 1 D)
     Route: 065
  6. KEPPRA [Suspect]
     Active Substance: LEVETIRACETAM
     Indication: Partial seizures
  7. VIMPAT [Suspect]
     Active Substance: LACOSAMIDE
     Indication: Seizure prophylaxis
     Dosage: UNK
     Route: 065
  8. VIMPAT [Suspect]
     Active Substance: LACOSAMIDE
     Indication: Epilepsy
  9. VIMPAT [Suspect]
     Active Substance: LACOSAMIDE
     Indication: Partial seizures
  10. VALPROIC ACID [Suspect]
     Active Substance: VALPROIC ACID
     Indication: Seizure prophylaxis
     Dosage: UNK
     Route: 065
  11. VALPROIC ACID [Suspect]
     Active Substance: VALPROIC ACID
     Indication: Epilepsy
     Dosage: UNK
     Route: 065
  12. VALPROIC ACID [Suspect]
     Active Substance: VALPROIC ACID
     Indication: Partial seizures
  13. CARBIDOPA\LEVODOPA [Suspect]
     Active Substance: CARBIDOPA\LEVODOPA
     Indication: Parkinson^s disease
     Dosage: UNK, (MD 5 ML, CONTINUOUS 4.2 ML/H, EXTRA 3 ML ) FORMULATION: INTESTINAL GEL VIA PERCUTANEOUS J-TUBE
     Dates: start: 2019

REACTIONS (8)
  - Pneumonia [Fatal]
  - General physical health deterioration [Fatal]
  - Status epilepticus [Not Recovered/Not Resolved]
  - Drug ineffective [Unknown]
  - Vitamin B6 deficiency [Not Recovered/Not Resolved]
  - Epilepsy [Not Recovered/Not Resolved]
  - Multiple-drug resistance [Unknown]
  - Vitamin B6 decreased [Unknown]
